FAERS Safety Report 24786926 (Version 1)
Quarter: 2024Q4

REPORT INFORMATION
  Report Type: Spontaneous
  Country: FR (occurrence: FR)
  Receive Date: 20241230
  Receipt Date: 20241230
  Transmission Date: 20250114
  Serious: Yes (Life-Threatening)
  Sender: DEXCEL LTD.
  Company Number: None

PATIENT
  Age: 1 Day
  Sex: Female
  Weight: 3.34 kg

DRUGS (2)
  1. CHLORHEXIDINE GLUCONATE [Suspect]
     Active Substance: CHLORHEXIDINE GLUCONATE
     Indication: Nasal congestion
     Route: 045
     Dates: start: 20240727, end: 20240727
  2. SODIUM CHLORIDE [Suspect]
     Active Substance: SODIUM CHLORIDE
     Indication: Nasal congestion
     Route: 045

REACTIONS (2)
  - Wrong product administered [Recovered/Resolved]
  - Neonatal respiratory distress syndrome [Recovered/Resolved]

NARRATIVE: CASE EVENT DATE: 20240727
